FAERS Safety Report 10239234 (Version 1)
Quarter: 2014Q2

REPORT INFORMATION
  Report Type: Spontaneous
  Country: US (occurrence: US)
  Receive Date: 20140616
  Receipt Date: 20140616
  Transmission Date: 20141212
  Serious: No
  Sender: FDA-Public Use
  Company Number: US-BIOGENIDEC-2014BI056164

PATIENT
  Sex: Male

DRUGS (1)
  1. AVONEX [Suspect]
     Indication: MULTIPLE SCLEROSIS
     Route: 030
     Dates: start: 20140530

REACTIONS (5)
  - Musculoskeletal disorder [Recovered/Resolved]
  - Fall [Recovered/Resolved]
  - Euphoric mood [Recovered/Resolved]
  - Somnolence [Recovered/Resolved]
  - Energy increased [Recovered/Resolved]
